FAERS Safety Report 9861905 (Version 1)
Quarter: 2014Q1

REPORT INFORMATION
  Report Type: Spontaneous
  Country: DE (occurrence: DE)
  Receive Date: 20140203
  Receipt Date: 20140203
  Transmission Date: 20141002
  Serious: Yes (Death)
  Sender: FDA-Public Use
  Company Number: DE-MYLANLABS-2014S1001358

PATIENT
  Age: 78 Year
  Sex: Female
  Weight: 74 kg

DRUGS (17)
  1. CLOPIDOGREL [Suspect]
     Indication: CORONARY ARTERIAL STENT INSERTION
     Dosage: DAILY DOSE: 75 MG MILLGRAM(S) EVERY DAYS
     Route: 048
     Dates: start: 20121122, end: 20130109
  2. FERRO SANOL DUODENAL [Concomitant]
     Indication: PRODUCT USED FOR UNKNOWN INDICATION
     Dosage: DAILY DOSE: 1 DF DOSAGE FORM EVERY DAYS
     Dates: end: 20130111
  3. METOBETA [Concomitant]
     Indication: PRODUCT USED FOR UNKNOWN INDICATION
     Dosage: DAILY DOSE: 100 MG MILLGRAM(S) EVERY DAYS- RETARD
  4. RAMIPRIL [Concomitant]
     Indication: PRODUCT USED FOR UNKNOWN INDICATION
     Dosage: DAILY DOSE: 0.5 DF DOSAGE FORM EVERY DAYS
     Dates: end: 20130101
  5. SIMVASTATIN [Concomitant]
     Indication: PRODUCT USED FOR UNKNOWN INDICATION
     Dosage: DAILY DOSE: 40 MG MILLGRAM(S) EVERY DAYS
     Dates: end: 20121227
  6. TORASEMID [Concomitant]
     Indication: PRODUCT USED FOR UNKNOWN INDICATION
     Dosage: DAILY DOSE: 2 DF DOSAGE FORM EVERY DAYS
     Dates: start: 20121228, end: 20130107
  7. TORASEMID [Concomitant]
     Indication: PRODUCT USED FOR UNKNOWN INDICATION
     Dosage: DAILY DOSE: 1 DF DOSAGE FORM EVERY DAYS
     Dates: start: 20130108, end: 20130123
  8. TORASEMID [Concomitant]
     Indication: PRODUCT USED FOR UNKNOWN INDICATION
     Dosage: DAILY DOSE: 0.5 DF DOSAGE FORM EVERY DAYS
     Dates: start: 20130124, end: 20130125
  9. VERTIGO VOMEX [Concomitant]
     Indication: PRODUCT USED FOR UNKNOWN INDICATION
     Dosage: DAILY DOSE: 3 DF DOSAGE FORM EVERY DAYS
     Dates: start: 20121225, end: 20131228
  10. RADEDORM [Concomitant]
     Indication: PRODUCT USED FOR UNKNOWN INDICATION
     Dosage: DAILY DOSE: 1 DF DOSAGE FORM EVERY DAYS
     Dates: start: 20121228, end: 20130105
  11. BIFITERAL [Concomitant]
     Indication: PRODUCT USED FOR UNKNOWN INDICATION
     Dosage: DAILY DOSE: 3 DF DOSAGE FORM EVERY DAYS
     Dates: start: 20121231, end: 20121231
  12. KONAKION [Concomitant]
     Indication: PRODUCT USED FOR UNKNOWN INDICATION
     Dates: start: 20130102, end: 20130111
  13. FENISTIL [Concomitant]
     Indication: PRURITUS
     Dosage: DAILY DOSE: 1 DF DOSAGE FORM EVERY DAYS
     Dates: start: 20130101, end: 20130111
  14. PREDNI [Concomitant]
     Indication: PRODUCT USED FOR UNKNOWN INDICATION
     Route: 042
     Dates: start: 20130108, end: 20130110
  15. HEPARIN [Concomitant]
     Indication: PRODUCT USED FOR UNKNOWN INDICATION
     Dosage: DAILY DOSE: 15000 IU INTERNATIONAL UNIT(S) EVERY DAYS
     Dates: start: 20121228, end: 20130103
  16. HEPARIN [Concomitant]
     Dosage: DAILY DOSE: 10000 IU INTERNATIONAL UNIT(S) EVERY DAYS
     Dates: start: 20130108, end: 20130122
  17. FALITHROM [Concomitant]
     Indication: ATRIAL FIBRILLATION

REACTIONS (1)
  - Acute hepatic failure [Fatal]
